FAERS Safety Report 17373287 (Version 1)
Quarter: 2020Q1

REPORT INFORMATION
  Report Type: Spontaneous
  Country: ZA (occurrence: ZA)
  Receive Date: 20200205
  Receipt Date: 20200205
  Transmission Date: 20200409
  Serious: Yes (Other)
  Sender: FDA-Public Use
  Company Number: ZA-AMGEN-ZAFSP2020018368

PATIENT
  Age: 59 Year
  Sex: Female
  Weight: 80 kg

DRUGS (1)
  1. ENBREL [Suspect]
     Active Substance: ETANERCEPT
     Indication: PRODUCT USED FOR UNKNOWN INDICATION
     Dosage: 50 MILLIGRAM, QWK
     Route: 058

REACTIONS (11)
  - Blood sodium decreased [Unknown]
  - White blood cell count decreased [Recovered/Resolved]
  - Glomerular filtration rate decreased [Recovered/Resolved]
  - Platelet count decreased [Not Recovered/Not Resolved]
  - Blood folate abnormal [Unknown]
  - Carbon dioxide decreased [Recovered/Resolved]
  - Red blood cell count decreased [Unknown]
  - Haemoglobin decreased [Recovered/Resolved]
  - Haematocrit decreased [Recovered/Resolved]
  - Transaminases increased [Unknown]
  - Weight increased [Unknown]

NARRATIVE: CASE EVENT DATE: 2018
